FAERS Safety Report 8004999-6 (Version None)
Quarter: 2011Q4

REPORT INFORMATION
  Report Type: 
  Country: None (occurrence: None)
  Receive Date: 20111223
  Receipt Date: 20111215
  Transmission Date: 20120403
  Serious: Yes (Hospitalization, Other)
  Sender: FDA-Public Use
  Company Number: CH-JNJFOC-20111206727

PATIENT
  Age: 87 Year
  Sex: Male

DRUGS (2)
  1. DURAGESIC-100 [Suspect]
     Route: 062
  2. DURAGESIC-100 [Suspect]
     Indication: PAIN
     Dosage: 1 PATCH OF 12.5 UG/HR AND HALH PATCH OF 12.5 UG/HR (6 UG/HR)
     Route: 062
     Dates: start: 20111022

REACTIONS (6)
  - PSYCHOMOTOR HYPERACTIVITY [None]
  - AGITATION [None]
  - DRUG PRESCRIBING ERROR [None]
  - CONFUSIONAL STATE [None]
  - PAIN [None]
  - OVERDOSE [None]
